FAERS Safety Report 7281087-8 (Version None)
Quarter: 2011Q1

REPORT INFORMATION
  Report Type: 
  Country: None (occurrence: None)
  Receive Date: 20110208
  Receipt Date: 20110127
  Transmission Date: 20110831
  Serious: Yes (Other)
  Sender: FDA-Public Use
  Company Number: FR-MERCK-1101FRA00151

PATIENT

DRUGS (2)
  1. EMEND [Suspect]
     Route: 048
  2. IFOSFAMIDE [Suspect]
     Route: 042

REACTIONS (1)
  - ENCEPHALOPATHY [None]
